FAERS Safety Report 16123218 (Version 1)
Quarter: 2019Q1

REPORT INFORMATION
  Report Type: Spontaneous
  Country: JP (occurrence: JP)
  Receive Date: 20190327
  Receipt Date: 20190327
  Transmission Date: 20190418
  Serious: Yes (Other)
  Sender: FDA-Public Use
  Company Number: JP-PFIZER INC-2019124293

PATIENT
  Age: 34 Year
  Sex: Female

DRUGS (4)
  1. PREGABALIN. [Suspect]
     Active Substance: PREGABALIN
     Indication: PAIN
     Dosage: 150 MG, DAILY
  2. ACYCLOVIR [ACICLOVIR] [Concomitant]
     Active Substance: ACYCLOVIR
     Dosage: UNK
     Route: 041
  3. LOXOPROFEN SODIUM [Concomitant]
     Active Substance: LOXOPROFEN SODIUM
     Indication: PAIN
     Dosage: 180 MG, DAILY
  4. ACETAMINOPHEN. [Concomitant]
     Active Substance: ACETAMINOPHEN
     Indication: PAIN
     Dosage: 2400 MG, DAILY

REACTIONS (1)
  - Drug-induced liver injury [Unknown]
